FAERS Safety Report 16939555 (Version 1)
Quarter: 2019Q4

REPORT INFORMATION
  Report Type: Spontaneous
  Country: DE (occurrence: DE)
  Receive Date: 20191021
  Receipt Date: 20191021
  Transmission Date: 20200122
  Serious: Yes (Other)
  Sender: FDA-Public Use
  Company Number: DE-TEVA-738484GER

PATIENT
  Age: 4 Decade
  Sex: Female
  Weight: 64 kg

DRUGS (7)
  1. PANTOPRAZOLE [Concomitant]
     Active Substance: PANTOPRAZOLE
     Indication: PROPHYLAXIS AGAINST GASTROINTESTINAL ULCER
     Dosage: FURTHER TAKEN?
     Route: 048
     Dates: start: 20160213, end: 20160315
  2. FOLSAEURE [Concomitant]
     Active Substance: FOLIC ACID
     Indication: PROPHYLAXIS OF NEURAL TUBE DEFECT
     Dosage: EXACT BEGIN UNKNOWN
     Route: 048
  3. ISOPTIN [Concomitant]
     Active Substance: VERAPAMIL HYDROCHLORIDE
     Indication: HYPERTENSION
     Dosage: 120 MG/D / PROBABLY FURTHER TAKEN
     Route: 048
     Dates: start: 20160213, end: 20160315
  4. PREDNISOLON ^JENAPHARM^ [Concomitant]
     Indication: RHEUMATOID ARTHRITIS
     Dosage: 15 MG/D/ INITIALLY 15MG/D, THEN DOSAGE REDUCTION
     Route: 048
     Dates: start: 20160302, end: 20160315
  5. IBUPROFEN. [Concomitant]
     Active Substance: IBUPROFEN
     Indication: PAIN
     Dosage: 400 MG/D/ FURTHER TAKEN?
     Route: 048
     Dates: start: 20160213, end: 20160315
  6. METHOTREXAT [Suspect]
     Active Substance: METHOTREXATE
     Indication: RHEUMATOID ARTHRITIS
     Dosage: 7.5 MG/WEEK
     Route: 058
     Dates: start: 20160213, end: 20160308
  7. HUMIRA [Concomitant]
     Active Substance: ADALIMUMAB
     Indication: RHEUMATOID ARTHRITIS
     Dosage: 40 MG/WEEK
     Route: 058
     Dates: start: 20160307, end: 20160307

REACTIONS (2)
  - Maternal exposure during pregnancy [Unknown]
  - Abortion spontaneous [Unknown]

NARRATIVE: CASE EVENT DATE: 20160213
